FAERS Safety Report 7959946-X (Version None)
Quarter: 2011Q4

REPORT INFORMATION
  Report Type: 
  Country: None (occurrence: None)
  Receive Date: 20111206
  Receipt Date: 20111121
  Transmission Date: 20120403
  Serious: Yes (Hospitalization)
  Sender: FDA-Public Use
  Company Number: TN-WATSON-2011-20817

PATIENT
  Age: 54 Year
  Sex: Male

DRUGS (2)
  1. VALPROATE SODIUM [Suspect]
     Indication: BRAIN NEOPLASM
     Dosage: 400 MG, DAILY
  2. PHENOBARBITAL TAB [Suspect]
     Indication: BRAIN NEOPLASM

REACTIONS (1)
  - DRUG RASH WITH EOSINOPHILIA AND SYSTEMIC SYMPTOMS [None]
